FAERS Safety Report 23964560 (Version 1)
Quarter: 2024Q2

REPORT INFORMATION
  Report Type: Spontaneous
  Country: US (occurrence: US)
  Receive Date: 20240612
  Receipt Date: 20240612
  Transmission Date: 20240716
  Serious: Yes (Hospitalization)
  Sender: FDA-Public Use
  Company Number: US-AMGEN-USASP2024111720

PATIENT
  Age: 29 Year
  Sex: Male

DRUGS (1)
  1. PREDNISONE [Suspect]
     Active Substance: PREDNISONE
     Indication: Thoracic outlet syndrome
     Dosage: UNK
     Route: 065

REACTIONS (4)
  - Subclavian artery aneurysm [Recovered/Resolved]
  - Embolism [Unknown]
  - Thoracic outlet syndrome [Unknown]
  - Off label use [Unknown]
